FAERS Safety Report 7606977-5 (Version None)
Quarter: 2011Q3

REPORT INFORMATION
  Report Type: 
  Country: None (occurrence: None)
  Receive Date: 20110713
  Receipt Date: 20110707
  Transmission Date: 20111222
  Serious: Yes (Hospitalization)
  Sender: FDA-Public Use
  Company Number: JP-B.I. PHARMACEUTICALS,INC./RIDGEFIELD-2011-BP-16921NB

PATIENT
  Age: 93 Year
  Sex: Female

DRUGS (8)
  1. PRADAXA [Suspect]
     Dosage: 220 MG
     Route: 048
     Dates: start: 20110630, end: 20110704
  2. WARFARIN SODIUM [Suspect]
     Dosage: 0.5 MG
     Route: 048
     Dates: end: 20110629
  3. ALDACTONE [Concomitant]
     Dosage: 25 MG
     Route: 065
  4. LANDSEN [Concomitant]
     Dosage: 40 MG
     Route: 065
  5. PLETAL [Suspect]
     Dosage: 100 MG
     Route: 048
  6. MAGMITT [Concomitant]
     Dosage: 660 MG
     Route: 048
  7. LASIX [Concomitant]
     Dosage: 40 MG
     Route: 065
  8. FAMOTIDINE [Concomitant]
     Dosage: 10 MG
     Route: 048

REACTIONS (3)
  - HAEMORRHAGIC DIATHESIS [None]
  - PROTHROMBIN TIME PROLONGED [None]
  - CHEST DISCOMFORT [None]
